FAERS Safety Report 14211268 (Version 1)
Quarter: 2017Q4

REPORT INFORMATION
  Report Type: Report from Study
  Country: GB (occurrence: GB)
  Receive Date: 20171121
  Receipt Date: 20171121
  Transmission Date: 20180321
  Serious: Yes (Hospitalization, Other)
  Sender: FDA-Public Use
  Company Number: PHHY2017GB170331

PATIENT
  Age: 12 Year
  Sex: Male
  Weight: 50.1 kg

DRUGS (1)
  1. OMNITROPE [Suspect]
     Active Substance: SOMATROPIN
     Indication: GROWTH HORMONE DEFICIENCY
     Dosage: 1.2 MG, QD
     Route: 058
     Dates: start: 20120726

REACTIONS (6)
  - Pyrexia [Unknown]
  - Lethargy [Unknown]
  - Pneumonia [Recovered/Resolved]
  - Cough [Unknown]
  - Malaise [Unknown]
  - Mitral valve incompetence [Unknown]

NARRATIVE: CASE EVENT DATE: 20161103
